FAERS Safety Report 26068077 (Version 1)
Quarter: 2025Q4

REPORT INFORMATION
  Report Type: Report from Study
  Country: JP (occurrence: JP)
  Receive Date: 20251120
  Receipt Date: 20251120
  Transmission Date: 20260117
  Serious: Yes (Other)
  Sender: TAKEDA
  Company Number: JP-TAKEDA-2025TJP011796

PATIENT

DRUGS (2)
  1. MARIBAVIR [Suspect]
     Active Substance: MARIBAVIR
     Indication: Product used for unknown indication
     Dosage: UNK
  2. MARIBAVIR [Suspect]
     Active Substance: MARIBAVIR
     Dosage: UNK

REACTIONS (1)
  - Cytomegalovirus enterocolitis [Recovering/Resolving]
